FAERS Safety Report 12579772 (Version 1)
Quarter: 2016Q3

REPORT INFORMATION
  Report Type: Spontaneous
  Country: GB (occurrence: GB)
  Receive Date: 20160721
  Receipt Date: 20160721
  Transmission Date: 20161109
  Serious: Yes (Other)
  Sender: FDA-Public Use
  Company Number: GB-NOVOPROD-501060

PATIENT
  Sex: Female

DRUGS (2)
  1. HUMULIN I [Suspect]
     Active Substance: INSULIN HUMAN
     Indication: TYPE 1 DIABETES MELLITUS
     Dosage: UNKNOWN DOSE, THREE TIMES DAILY
     Route: 065
  2. TRESIBA [Suspect]
     Active Substance: INSULIN DEGLUDEC
     Indication: TYPE 1 DIABETES MELLITUS
     Dosage: UNKNOWN DOSE, ONCE DAILY
     Route: 065

REACTIONS (1)
  - Ketosis [Unknown]
